FAERS Safety Report 24144825 (Version 1)
Quarter: 2024Q3

REPORT INFORMATION
  Report Type: Spontaneous
  Country: US (occurrence: US)
  Receive Date: 20240729
  Receipt Date: 20240729
  Transmission Date: 20241017
  Serious: No
  Sender: ROCHE
  Company Number: US-ROCHE-10000035312

PATIENT
  Age: 15 Year
  Sex: Female

DRUGS (6)
  1. ACTEMRA [Suspect]
     Active Substance: TOCILIZUMAB
     Indication: Autoimmune thyroiditis
     Route: 065
  2. CANAKINUMAB [Concomitant]
     Active Substance: CANAKINUMAB
  3. ORENCIA [Concomitant]
     Active Substance: ABATACEPT
  4. ARAVA [Concomitant]
     Active Substance: LEFLUNOMIDE
  5. METHOTREXATE [Concomitant]
     Active Substance: METHOTREXATE
  6. GAMIFANT [Concomitant]
     Active Substance: EMAPALUMAB-LZSG

REACTIONS (2)
  - Drug ineffective [Unknown]
  - No adverse event [Unknown]
